FAERS Safety Report 23806585 (Version 1)
Quarter: 2024Q2

REPORT INFORMATION
  Report Type: Spontaneous
  Country: US (occurrence: US)
  Receive Date: 20240502
  Receipt Date: 20240502
  Transmission Date: 20240716
  Serious: Yes (Hospitalization, Other)
  Sender: FDA-Public Use
  Company Number: US-BRISTOL-MYERS SQUIBB COMPANY-2024-065256

PATIENT
  Age: 51 Year
  Sex: Male

DRUGS (3)
  1. TRIAMCINOLONE ACETONIDE [Suspect]
     Active Substance: TRIAMCINOLONE ACETONIDE
     Indication: Seasonal allergy
     Route: 030
  2. METHYLPREDNISOLONE [Suspect]
     Active Substance: METHYLPREDNISOLONE
     Indication: Seasonal allergy
     Dosage: STARTING WITH 24 MG ON DAY 1 AND ENDING WITH 4 MG ON DAY 6
  3. METHYLPREDNISOLONE [Suspect]
     Active Substance: METHYLPREDNISOLONE
     Dosage: STARTING WITH 24 MG ON DAY 1 AND ENDING WITH 4 MG ON DAY 6

REACTIONS (2)
  - Coccidioidomycosis [Recovering/Resolving]
  - Condition aggravated [Recovering/Resolving]
